FAERS Safety Report 10235341 (Version 1)
Quarter: 2014Q1

REPORT INFORMATION
  Report Type: Spontaneous
  Country: US (occurrence: None)
  Receive Date: 20140306
  Receipt Date: 20140306
  Transmission Date: 20141002
  Serious: No
  Sender: FDA-Public Use
  Company Number: 163-21880-13092125

PATIENT
  Age: 70 Year
  Sex: Female

DRUGS (5)
  1. REVLIMID (LENALIDOMIDE) (25 MILLIGRAM, CAPSULES) [Suspect]
     Indication: PLASMA CELL MYELOMA
     Route: 048
     Dates: start: 201302
  2. PREDNISONE (PREDNISONE) (TABLETS) [Concomitant]
  3. DOXYCYLCLINE HYCLATE (DOXYCYLINE HYCALTE) (TABLETS) [Concomitant]
  4. PROAIR (FLUTICASONE PROPIONATE) (INHALANT) [Concomitant]
  5. DEXAMETHASONE (DEXAMETHASONE) (TABLETS) [Concomitant]

REACTIONS (2)
  - Endocarditis [None]
  - Cardiac flutter [None]
